FAERS Safety Report 7796304-5 (Version None)
Quarter: 2011Q4

REPORT INFORMATION
  Report Type: 
  Country: None (occurrence: None)
  Receive Date: 20111005
  Receipt Date: 20110926
  Transmission Date: 20120403
  Serious: Yes (Death, Other)
  Sender: FDA-Public Use
  Company Number: DK-AMGEN-DNKSP2011050038

PATIENT
  Age: 62 Year
  Sex: Female

DRUGS (11)
  1. SIMVASTATIN [Concomitant]
     Dosage: UNK UNK, UNK
  2. B-COMBIN                           /00003501/ [Concomitant]
     Dosage: UNK UNK, UNK
  3. PREDNISOLONE [Concomitant]
     Dosage: UNK UNK, UNK
     Route: 048
  4. DICLOXACILLIN [Concomitant]
     Dosage: UNK UNK, UNK
     Route: 048
  5. ENBREL [Suspect]
     Indication: RHEUMATOID ARTHRITIS
     Dosage: 25 DF, 2X/WEEK
     Route: 058
     Dates: end: 20050615
  6. WARFARIN SODIUM [Concomitant]
     Dosage: UNK
     Route: 048
  7. NEXIUM [Concomitant]
     Dosage: UNK UNK, UNK
     Route: 048
  8. OXYCONTIN [Concomitant]
     Dosage: UNK
     Route: 048
  9. NEORECORMON [Concomitant]
     Dosage: UNK UNK, UNK
     Route: 058
  10. VANCOMYCIN [Concomitant]
     Dosage: UNK UNK, UNK
  11. FOLIMET [Concomitant]
     Dosage: 5 MG, UNK
     Route: 048

REACTIONS (6)
  - PANCREATIC NEOPLASM [None]
  - SEPSIS [None]
  - HYPOTONIA [None]
  - MITRAL VALVE DISEASE [None]
  - AMNESIA [None]
  - ENDOCARDITIS [None]
